FAERS Safety Report 6534155-X (Version None)
Quarter: 2009Q4

REPORT INFORMATION
  Report Type: 
  Country: None (occurrence: None)
  Receive Date: 20091214
  Receipt Date: 20090402
  Transmission Date: 20100525
  Serious: Yes (Other)
  Sender: FDA-Public Use
  Company Number: 386368

PATIENT
  Age: 50 Year
  Sex: Female

DRUGS (4)
  1. PEGASYS [Suspect]
     Indication: HEPATITIS C
     Dosage: SUBCUTANEOUS
     Route: 058
     Dates: start: 20040201, end: 20090325
  2. PROZAC [Concomitant]
  3. DARVOCET (ACETAMINOPHEN/PROPOXYPHENE NAPSYLATE) [Concomitant]
  4. COPEGUS [Suspect]
     Dosage: ORAL
     Dates: start: 20040201, end: 20090331

REACTIONS (3)
  - ANXIETY [None]
  - DEPRESSION [None]
  - SUICIDAL IDEATION [None]
